FAERS Safety Report 18882089 (Version 1)
Quarter: 2021Q1

REPORT INFORMATION
  Report Type: Spontaneous
  Country: US (occurrence: US)
  Receive Date: 20210211
  Receipt Date: 20210211
  Transmission Date: 20210420
  Serious: No
  Sender: FDA-Public Use
  Company Number: US-BRECKENRIDGE PHARMACEUTICAL, INC.-2106640

PATIENT
  Age: 68 Year
  Sex: Female
  Weight: 54.55 kg

DRUGS (1)
  1. AZELASTINE HYDROCHLORIDE. [Suspect]
     Active Substance: AZELASTINE HYDROCHLORIDE
     Indication: SINUSITIS
     Route: 045

REACTIONS (2)
  - Dysgeusia [None]
  - Nasal discomfort [None]
